FAERS Safety Report 19403584 (Version 1)
Quarter: 2021Q2

REPORT INFORMATION
  Report Type: Spontaneous
  Country: US (occurrence: US)
  Receive Date: 20210610
  Receipt Date: 20210610
  Transmission Date: 20210717
  Serious: Yes (Hospitalization)
  Sender: FDA-Public Use
  Company Number: US-ASTRAZENECA-2021A501008

PATIENT
  Age: 76 Year
  Sex: Female
  Weight: 81.2 kg

DRUGS (1)
  1. FASENRA [Suspect]
     Active Substance: BENRALIZUMAB
     Route: 058
     Dates: start: 20210512

REACTIONS (2)
  - Pneumonia [Recovering/Resolving]
  - Dehydration [Recovering/Resolving]

NARRATIVE: CASE EVENT DATE: 20210601
